FAERS Safety Report 22114900 (Version 1)
Quarter: 2023Q1

REPORT INFORMATION
  Report Type: Spontaneous
  Country: US (occurrence: US)
  Receive Date: 20230320
  Receipt Date: 20230320
  Transmission Date: 20230417
  Serious: Yes (Other)
  Sender: FDA-Public Use
  Company Number: US-BAYER-2023A033553

PATIENT
  Age: 23 Year
  Sex: Female

DRUGS (3)
  1. KYLEENA [Suspect]
     Active Substance: LEVONORGESTREL
     Indication: Contraception
     Dosage: 17.5?G/DAY
     Route: 015
     Dates: start: 202105
  2. KYLEENA [Suspect]
     Active Substance: LEVONORGESTREL
     Indication: Heavy menstrual bleeding
  3. KYLEENA [Suspect]
     Active Substance: LEVONORGESTREL
     Indication: Polymenorrhoea

REACTIONS (2)
  - Embedded device [Not Recovered/Not Resolved]
  - Medical device pain [None]
